FAERS Safety Report 6613647-9 (Version None)
Quarter: 2010Q1

REPORT INFORMATION
  Report Type: 
  Country: None (occurrence: None)
  Receive Date: 20100225
  Receipt Date: 20100205
  Transmission Date: 20100710
  Serious: Yes (Hospitalization)
  Sender: FDA-Public Use
  Company Number: 1-21591502

PATIENT
  Sex: Female

DRUGS (2)
  1. FENTANYL-75 [Suspect]
     Indication: PAIN
     Dosage: 75 MCG/HR EVERY 72 HRS, TRANSDERMAL
     Route: 062
     Dates: end: 20100207
  2. CYCLOBENZAPRINE [Suspect]
     Indication: MUSCLE SPASMS
     Dosage: 10 MG, 3 TIMES DAILY AS NEEDED, ORAL
     Route: 048

REACTIONS (3)
  - CHRONIC OBSTRUCTIVE PULMONARY DISEASE [None]
  - PNEUMONIA [None]
  - SOMNOLENCE [None]
